FAERS Safety Report 6483835-3 (Version None)
Quarter: 2009Q4

REPORT INFORMATION
  Report Type: 
  Country: None (occurrence: None)
  Receive Date: 20091209
  Receipt Date: 20091201
  Transmission Date: 20100525
  Serious: Yes (Hospitalization)
  Sender: FDA-Public Use
  Company Number: JP-ASTRAZENECA-2008AP09062

PATIENT
  Age: 24627 Day
  Sex: Male
  Weight: 65 kg

DRUGS (5)
  1. OMEPRAL [Suspect]
     Indication: GASTRITIS
     Route: 048
     Dates: start: 20080903, end: 20081107
  2. GASTROM [Suspect]
     Indication: GASTRITIS
     Route: 048
     Dates: start: 20080903, end: 20081107
  3. URINORM [Suspect]
     Indication: HYPERURICAEMIA
     Route: 048
     Dates: start: 20080303, end: 20081022
  4. BLOPRESS [Concomitant]
     Indication: HYPERTENSION
     Route: 048
  5. MAINTATE [Concomitant]
     Indication: HYPERTENSION
     Route: 048

REACTIONS (1)
  - HEPATIC FUNCTION ABNORMAL [None]
